FAERS Safety Report 9258098 (Version 2)
Quarter: 2013Q4

REPORT INFORMATION
  Report Type: Spontaneous
  Country: US (occurrence: US)
  Receive Date: 20130426
  Receipt Date: 20131004
  Transmission Date: 20140711
  Serious: Yes (Hospitalization, Disabling)
  Sender: FDA-Public Use
  Company Number: US-ASTRAZENECA-2013SE27385

PATIENT
  Age: 693 Month
  Sex: Female
  Weight: 88.9 kg

DRUGS (40)
  1. NEXIUM [Suspect]
     Indication: GASTROOESOPHAGEAL REFLUX DISEASE
     Dosage: 40 MG ONE TO TWO TIMES DAILY
     Route: 048
     Dates: start: 2001, end: 2009
  2. NEXIUM [Suspect]
     Indication: GASTROOESOPHAGEAL REFLUX DISEASE
     Route: 048
     Dates: start: 20060926
  3. PRILOSEC [Suspect]
     Indication: GASTROOESOPHAGEAL REFLUX DISEASE
     Dosage: 40 MG ONE TO TWO TIMES DAILY
     Route: 048
     Dates: start: 1985, end: 2000
  4. PRILOSEC [Suspect]
     Indication: GASTROOESOPHAGEAL REFLUX DISEASE
     Route: 048
     Dates: start: 20061113
  5. PRILOSEC OTC [Suspect]
     Route: 048
     Dates: start: 2009
  6. PREVACID [Concomitant]
     Indication: GASTROOESOPHAGEAL REFLUX DISEASE
     Dosage: 40 MG ONE TO TWO TIMES DAILY
     Dates: start: 2009
  7. ZANTAC [Concomitant]
     Dates: start: 1985
  8. PEPCID [Concomitant]
     Dates: start: 1985
  9. TAGAMET [Concomitant]
     Dates: start: 1985
  10. ROLAIDS [Concomitant]
     Dates: start: 1985
  11. PEPTO-BISMOL [Concomitant]
     Dates: start: 1985
  12. MYLANTA [Concomitant]
     Dates: start: 1985
  13. MILK OF MAGNESIA [Concomitant]
     Dates: start: 1985
  14. PAPAYA ENZYME [Concomitant]
     Indication: GASTROOESOPHAGEAL REFLUX DISEASE
  15. CALTRATE/TUMS [Concomitant]
     Indication: FUNGAL INFECTION
     Dates: start: 1985
  16. VITAMIN B12 [Concomitant]
  17. MULTIVITAMIN [Concomitant]
  18. FISH OIL [Concomitant]
  19. ZOCOR [Concomitant]
     Indication: BLOOD CHOLESTEROL INCREASED
  20. ZYRTEC [Concomitant]
     Indication: HYPERSENSITIVITY
     Dates: start: 20020227
  21. CIPRO [Concomitant]
     Indication: SINUSITIS
  22. FOLIC ACID [Concomitant]
     Dates: start: 20020125
  23. ASACOL [Concomitant]
     Indication: GASTROOESOPHAGEAL REFLUX DISEASE
     Dates: start: 20020125
  24. DIFLUCAN [Concomitant]
  25. ZITHROMAX [Concomitant]
     Dates: start: 20051217
  26. TOPOMAX [Concomitant]
     Dates: start: 20070123
  27. ESTRADIOL [Concomitant]
     Indication: HORMONE REPLACEMENT THERAPY
  28. PREDNISONE [Concomitant]
     Dates: start: 20070118
  29. HYDROCODONE [Concomitant]
  30. METOPROLOL [Concomitant]
     Dates: start: 20060504
  31. MUPIROCIN [Concomitant]
  32. MAXALT [Concomitant]
     Dates: start: 20070126
  33. CLARITHROMYCIN [Concomitant]
  34. PROMETHAZINE [Concomitant]
     Dates: start: 20020329
  35. TRIAMTERENE [Concomitant]
  36. VANIQUA [Concomitant]
  37. FLUCONAZOLE [Concomitant]
  38. NAPROXEN [Concomitant]
  39. MEPROZINE [Concomitant]
  40. CEPHALEXIN [Concomitant]
     Dates: start: 20030114

REACTIONS (15)
  - Uterine disorder [Unknown]
  - Migraine [Unknown]
  - Osteoporosis [Unknown]
  - Bone disorder [Unknown]
  - Multiple fractures [Unknown]
  - Bone density decreased [Unknown]
  - Nephrolithiasis [Unknown]
  - Angina pectoris [Unknown]
  - Arthritis [Unknown]
  - Rheumatoid arthritis [Unknown]
  - Crohn^s disease [Unknown]
  - Calcium deficiency [Unknown]
  - Vitamin D deficiency [Unknown]
  - Hypertension [Unknown]
  - Osteoarthritis [Unknown]
